APPROVED DRUG PRODUCT: CORTEF
Active Ingredient: HYDROCORTISONE
Strength: 10MG
Dosage Form/Route: TABLET;ORAL
Application: N008697 | Product #001 | TE Code: AB
Applicant: PHARMACIA AND UPJOHN CO
Approved: Approved Prior to Jan 1, 1982 | RLD: Yes | RS: No | Type: RX